FAERS Safety Report 8588778-7 (Version None)
Quarter: 2012Q3

REPORT INFORMATION
  Report Type: 
  Country: None (occurrence: None)
  Receive Date: 20120813
  Receipt Date: 20120809
  Transmission Date: 20120928
  Serious: Yes (Other)
  Sender: FDA-Public Use
  Company Number: PHHY2012BR043443

PATIENT
  Sex: Male

DRUGS (5)
  1. ALDACTONE [Concomitant]
     Indication: BLOOD PRESSURE
     Dosage: 1 DF, DAILY
     Route: 048
     Dates: start: 20110401
  2. LASIX [Concomitant]
     Indication: OEDEMA PERIPHERAL
     Dosage: 2 DF, DAILY
     Route: 048
     Dates: start: 20110401
  3. DIOVAN HCT [Suspect]
     Indication: BLOOD PRESSURE ABNORMAL
     Dosage: 1 DF(320MG VALS/ 12.5MG HCT) DAILY
     Route: 048
  4. ASPIRIN [Concomitant]
     Dosage: 1 DF, DAILY
     Route: 048
     Dates: start: 20120701
  5. ROXFLAN [Concomitant]
     Indication: BLOOD PRESSURE ABNORMAL
     Dosage: 1 DF, DAILY
     Route: 048

REACTIONS (1)
  - THROMBOSIS [None]
